FAERS Safety Report 6457514-2 (Version None)
Quarter: 2009Q4

REPORT INFORMATION
  Report Type: 
  Country: None (occurrence: None)
  Receive Date: 20091125
  Receipt Date: 20091123
  Transmission Date: 20100525
  Serious: Yes (Other)
  Sender: FDA-Public Use
  Company Number: US-ROXANE LABORATORIES, INC.-2009-RO-01186RO

PATIENT
  Age: 62 Year
  Sex: Male

DRUGS (1)
  1. AZATHIOPRINE [Suspect]
     Indication: WEGENER'S GRANULOMATOSIS
     Dosage: 150 MG

REACTIONS (4)
  - HYPERSENSITIVITY [None]
  - NAIL DISORDER [None]
  - ONYCHOLYSIS [None]
  - TRANSAMINASES INCREASED [None]
